FAERS Safety Report 8950537 (Version 1)
Quarter: 2012Q4

REPORT INFORMATION
  Report Type: Spontaneous
  Country: US (occurrence: None)
  Receive Date: 20121204
  Receipt Date: 20121204
  Transmission Date: 20130627
  Serious: Yes (Hospitalization)
  Sender: FDA-Public Use
  Company Number: None

PATIENT
  Age: 61 Year
  Sex: Male
  Weight: 85 kg

DRUGS (1)
  1. VANCOMYCIN [Suspect]
     Indication: WOUND ABSCESS
     Route: 042
     Dates: start: 20120530, end: 20120609

REACTIONS (2)
  - Nephropathy toxic [None]
  - Renal failure acute [None]
